FAERS Safety Report 25435241 (Version 1)
Quarter: 2025Q2

REPORT INFORMATION
  Report Type: Spontaneous
  Country: BR (occurrence: BR)
  Receive Date: 20250613
  Receipt Date: 20250613
  Transmission Date: 20250717
  Serious: Yes (Hospitalization)
  Sender: DR REDDYS
  Company Number: BR-RDY-BRA/2025/06/008464

PATIENT
  Age: 76 Year
  Sex: Female

DRUGS (1)
  1. DONEPEZIL [Suspect]
     Active Substance: DONEPEZIL
     Indication: Dementia
     Route: 065
     Dates: end: 20250531

REACTIONS (5)
  - Head injury [Recovered/Resolved]
  - Pelvic pain [Recovered/Resolved]
  - Heart rate increased [Recovered/Resolved]
  - Fall [Recovered/Resolved]
  - Extra dose administered [Unknown]

NARRATIVE: CASE EVENT DATE: 20250531
